FAERS Safety Report 16822778 (Version 1)
Quarter: 2019Q3

REPORT INFORMATION
  Report Type: Report from Study
  Country: CA (occurrence: CA)
  Receive Date: 20190918
  Receipt Date: 20190918
  Transmission Date: 20191005
  Serious: Yes (Other)
  Sender: FDA-Public Use
  Company Number: CA-PFIZER INC-2019396009

PATIENT
  Age: 28 Year
  Sex: Female

DRUGS (11)
  1. ACYCLOVIR [ACICLOVIR] [Suspect]
     Active Substance: ACYCLOVIR
     Indication: ANTIVIRAL TREATMENT
     Dosage: 200 MG, 2X/DAY
     Route: 048
  2. METHYLPREDNISOLONE SODIUM SUCCINATE. [Suspect]
     Active Substance: METHYLPREDNISOLONE SODIUM SUCCINATE
     Indication: ANTIINFLAMMATORY THERAPY
     Dosage: 1 G, 1X/DAY
     Route: 042
  3. PROPRANOLOL HYDROCHLORIDE. [Concomitant]
     Active Substance: PROPRANOLOL HYDROCHLORIDE
     Dosage: UNK
  4. LEMTRADA [Suspect]
     Active Substance: ALEMTUZUMAB
     Indication: RELAPSING-REMITTING MULTIPLE SCLEROSIS
     Dosage: 12 MG, 1X/DAY
     Route: 041
  5. GRAVOL [Concomitant]
     Active Substance: DIMENHYDRINATE
     Dosage: UNK
  6. BISOPROLOL [Concomitant]
     Active Substance: BISOPROLOL
     Dosage: UNK
  7. EFFEXOR [Concomitant]
     Active Substance: VENLAFAXINE HYDROCHLORIDE
     Dosage: UNK
  8. ERGOCALCIFEROL. [Concomitant]
     Active Substance: ERGOCALCIFEROL
     Dosage: UNK
  9. ACETAMINOPHEN AND CODEINE [Concomitant]
     Active Substance: ACETAMINOPHEN\CODEINE PHOSPHATE
     Dosage: UNK
  10. BENADRYL [Concomitant]
     Active Substance: DIPHENHYDRAMINE HYDROCHLORIDE
     Dosage: UNK
  11. RANITIDINE. [Concomitant]
     Active Substance: RANITIDINE
     Dosage: UNK

REACTIONS (45)
  - Neutrophil percentage increased [Unknown]
  - Pruritus [Unknown]
  - Appetite disorder [Unknown]
  - Blood thyroid stimulating hormone decreased [Unknown]
  - Gait disturbance [Unknown]
  - Lymphocyte percentage decreased [Unknown]
  - Swollen tongue [Unknown]
  - White blood cell count decreased [Unknown]
  - Dyspnoea [Unknown]
  - Eye swelling [Unknown]
  - Thyroxine free decreased [Unknown]
  - Feeling hot [Unknown]
  - Muscle spasms [Unknown]
  - Pain in extremity [Unknown]
  - Urine analysis abnormal [Unknown]
  - Cough [Unknown]
  - Erythema [Unknown]
  - Monocyte count abnormal [Unknown]
  - Paraesthesia [Unknown]
  - Contusion [Unknown]
  - Dysphagia [Unknown]
  - Headache [Unknown]
  - Lymphocyte count decreased [Unknown]
  - Nervousness [Unknown]
  - Palpitations [Unknown]
  - Rash [Unknown]
  - Blood thyroid stimulating hormone increased [Unknown]
  - Chills [Unknown]
  - Dizziness [Unknown]
  - Eosinophil count abnormal [Unknown]
  - Menstrual disorder [Unknown]
  - Myelocyte count increased [Unknown]
  - Nasal congestion [Unknown]
  - Nausea [Unknown]
  - Peripheral swelling [Unknown]
  - Abdominal distension [Unknown]
  - Anxiety [Unknown]
  - Arthralgia [Unknown]
  - Chest discomfort [Unknown]
  - Fatigue [Unknown]
  - Optic neuritis [Unknown]
  - Thyroxine free increased [Unknown]
  - Tremor [Unknown]
  - Urine leukocyte esterase [Unknown]
  - Urticaria [Unknown]
